FAERS Safety Report 16500677 (Version 2)
Quarter: 2019Q3

REPORT INFORMATION
  Report Type: Report from Study
  Country: US (occurrence: US)
  Receive Date: 20190701
  Receipt Date: 20190711
  Transmission Date: 20191004
  Serious: Yes (Hospitalization)
  Sender: FDA-Public Use
  Company Number: US-ROCHE-2341387

PATIENT
  Age: 68 Year
  Sex: Male
  Weight: 111.23 kg

DRUGS (4)
  1. VENCLEXTA [Suspect]
     Active Substance: VENETOCLAX
     Indication: CHRONIC LYMPHOCYTIC LEUKAEMIA
     Dosage: ONCE A DAY ;ONGOING: NO
     Route: 048
     Dates: start: 201905, end: 20190509
  2. RITUXAN [Suspect]
     Active Substance: RITUXIMAB
     Indication: RED BLOOD CELL ABNORMALITY
     Dosage: ONGOING: UNKNOWN
     Route: 065
     Dates: start: 201905
  3. VENCLEXTA [Suspect]
     Active Substance: VENETOCLAX
     Indication: HAEMOLYTIC ANAEMIA
     Dosage: 50 MG 1-2, ONGOING; UNKNOWN
     Route: 048
     Dates: start: 201905
  4. RITUXAN [Suspect]
     Active Substance: RITUXIMAB
     Dosage: DURATION: 12 DAYS
     Route: 065
     Dates: start: 201904, end: 201904

REACTIONS (3)
  - Red blood cell count decreased [Not Recovered/Not Resolved]
  - Asthenia [Not Recovered/Not Resolved]
  - Gait disturbance [Not Recovered/Not Resolved]

NARRATIVE: CASE EVENT DATE: 20190510
